FAERS Safety Report 17175103 (Version 1)
Quarter: 2019Q4

REPORT INFORMATION
  Report Type: Spontaneous
  Country: US (occurrence: US)
  Receive Date: 20191218
  Receipt Date: 20191218
  Transmission Date: 20200122
  Serious: Yes (Hospitalization)
  Sender: FDA-Public Use
  Company Number: None

PATIENT
  Sex: Female

DRUGS (8)
  1. PREDNISONE TAB5MG [Concomitant]
     Dates: start: 20160602
  2. NAPROXEN DR TAB 500MG [Concomitant]
     Dates: start: 20170314
  3. METHOTREXATE TAB 2.5MG [Concomitant]
     Active Substance: METHOTREXATE
     Dates: start: 20160504
  4. LEVOTHYROXIN TAB 125MCG [Concomitant]
     Dates: start: 20160504
  5. FOLIC ACID TAB 1MG [Concomitant]
     Dates: start: 20180214
  6. LISINOP/HCTZ TAB 10-12.5 [Concomitant]
     Dates: start: 20160504
  7. HUMIRA [Suspect]
     Active Substance: ADALIMUMAB
     Indication: RHEUMATOID ARTHRITIS
     Dosage: ?          OTHER FREQUENCY:EVERY 14 DAYS;?
     Route: 058
     Dates: start: 20150930
  8. CYMBALTA CAP 60MG [Concomitant]
     Dates: start: 20190513

REACTIONS (3)
  - Fall [None]
  - Concussion [None]
  - Rib fracture [None]
